FAERS Safety Report 25970981 (Version 1)
Quarter: 2025Q4

REPORT INFORMATION
  Report Type: Spontaneous
  Country: US (occurrence: US)
  Receive Date: 20251028
  Receipt Date: 20251028
  Transmission Date: 20260117
  Serious: No
  Sender: UNITED EXCHANGE
  Company Number: US-United Exchange Corporation-2187415

PATIENT
  Sex: Female

DRUGS (1)
  1. CVS MEDICATED HEAT 1 CT [Suspect]
     Active Substance: CAPSAICIN
     Indication: Pain
     Dates: start: 20250722, end: 20250722

REACTIONS (1)
  - Thermal burn [Unknown]
